FAERS Safety Report 18876946 (Version 1)
Quarter: 2021Q1

REPORT INFORMATION
  Report Type: Spontaneous
  Country: JP (occurrence: JP)
  Receive Date: 20210211
  Receipt Date: 20210211
  Transmission Date: 20210420
  Serious: Yes (Other)
  Sender: FDA-Public Use
  Company Number: JP-ROCHE-2765870

PATIENT
  Sex: Male
  Weight: 62 kg

DRUGS (3)
  1. XELODA [Suspect]
     Active Substance: CAPECITABINE
     Dosage: DOSE INTERVAL UNCERTAINTY
     Route: 048
     Dates: start: 2020
  2. XELODA [Suspect]
     Active Substance: CAPECITABINE
     Indication: COLON CANCER
     Dosage: TWICE ONCE ON THE FIRST FOR FOUR
     Route: 048
     Dates: start: 201911
  3. XELODA [Suspect]
     Active Substance: CAPECITABINE
     Dosage: DOSE INTERVAL UNCERTAINTY
     Route: 048
     Dates: start: 2020

REACTIONS (2)
  - Gastrointestinal inflammation [Unknown]
  - Haemoglobin decreased [Unknown]
